FAERS Safety Report 4509396-3 (Version None)
Quarter: 2004Q4

REPORT INFORMATION
  Report Type: 
  Country: None (occurrence: None)
  Receive Date: 20041025
  Receipt Date: 20040817
  Transmission Date: 20050328
  Serious: Yes (Other)
  Sender: FDA-Public Use
  Company Number: US-JNJFOC-20040606861

PATIENT
  Age: 73 Year
  Sex: Female
  Weight: 47.6277 kg

DRUGS (9)
  1. REMICADE [Suspect]
     Indication: RHEUMATOID ARTHRITIS
     Dosage: 400 MG, INTRAVENOUS
     Route: 042
     Dates: start: 20020101
  2. REMICADE [Suspect]
     Indication: RHEUMATOID ARTHRITIS
     Dosage: 400 MG, INTRAVENOUS
     Route: 042
     Dates: start: 20040501
  3. PREDNISONE [Concomitant]
  4. SYNTHROID [Concomitant]
  5. DETROL [Concomitant]
  6. NORPACE [Concomitant]
  7. FOLIC ACID [Concomitant]
  8. PRILOSEC [Concomitant]
  9. PLACQUENIL (HYDROXYCHLOROQUINE PHOSPHATE) [Concomitant]

REACTIONS (3)
  - CHILLS [None]
  - RASH [None]
  - SYSTEMIC LUPUS ERYTHEMATOSUS [None]
